FAERS Safety Report 24617530 (Version 3)
Quarter: 2025Q2

REPORT INFORMATION
  Report Type: Spontaneous
  Country: US (occurrence: US)
  Receive Date: 20241114
  Receipt Date: 20250421
  Transmission Date: 20250717
  Serious: Yes (Hospitalization)
  Sender: BIOGEN
  Company Number: US-BIOGEN-2024BI01289949

PATIENT
  Age: 32 Year
  Sex: Female

DRUGS (1)
  1. SPINRAZA [Suspect]
     Active Substance: NUSINERSEN
     Indication: Spinal muscular atrophy
     Route: 050
     Dates: start: 20181205

REACTIONS (8)
  - Hip fracture [Unknown]
  - Femur fracture [Unknown]
  - Postoperative ileus [Unknown]
  - Osteoporosis [Unknown]
  - Arthralgia [Unknown]
  - Musculoskeletal procedural complication [Unknown]
  - Complication associated with device [Unknown]
  - Fall [Recovered/Resolved]

NARRATIVE: CASE EVENT DATE: 20241019
